FAERS Safety Report 8970028 (Version 1)
Quarter: 2012Q4

REPORT INFORMATION
  Report Type: 
  Country: CA (occurrence: CA)
  Receive Date: 20121217
  Receipt Date: 20121217
  Transmission Date: 20130627
  Serious: Yes (Other)
  Sender: FDA-Public Use
  Company Number: CA-ELI_LILLY_AND_COMPANY-CA201209001262

PATIENT
  Age: 18 Year
  Sex: Female

DRUGS (1)
  1. CYMBALTA [Suspect]
     Indication: FIBROMYALGIA
     Dosage: 30 mg, qd

REACTIONS (2)
  - Systemic lupus erythematosus [Not Recovered/Not Resolved]
  - Coeliac disease [Not Recovered/Not Resolved]
